FAERS Safety Report 18283898 (Version 2)
Quarter: 2020Q3

REPORT INFORMATION
  Report Type: Spontaneous
  Country: US (occurrence: US)
  Receive Date: 20200918
  Receipt Date: 20200928
  Transmission Date: 20201103
  Serious: No
  Sender: FDA-Public Use
  Company Number: US-JNJFOC-20200916526

PATIENT
  Sex: Female

DRUGS (1)
  1. ULTRACET [Suspect]
     Active Substance: ACETAMINOPHEN\TRAMADOL HYDROCHLORIDE
     Indication: FIBROMYALGIA
     Dosage: HAS BEEN ON IT LONG TERM FOR MANY YEARS
     Route: 065

REACTIONS (7)
  - Blood pressure abnormal [Unknown]
  - Feeling abnormal [Unknown]
  - Insomnia [Unknown]
  - Drug ineffective [Unknown]
  - Cognitive disorder [Unknown]
  - Product dose omission issue [Unknown]
  - Illness [Unknown]
